FAERS Safety Report 8791205 (Version 1)
Quarter: 2012Q4

REPORT INFORMATION
  Report Type: Spontaneous
  Country: US (occurrence: None)
  Receive Date: 20120911
  Receipt Date: 20120911
  Transmission Date: 20130627
  Serious: Yes (Hospitalization)
  Sender: FDA-Public Use
  Company Number: ACO_31817_2012

PATIENT
  Age: 50 Year
  Sex: Female

DRUGS (2)
  1. AMPYRA [Suspect]
     Dates: start: 201102
  2. REBIF (INTERFERON BETA-1A) [Concomitant]

REACTIONS (2)
  - Migraine [None]
  - Multiple sclerosis relapse [None]
